FAERS Safety Report 5110064-8 (Version None)
Quarter: 2006Q3

REPORT INFORMATION
  Report Type: 
  Country: None (occurrence: None)
  Receive Date: 20060919
  Receipt Date: 20060919
  Transmission Date: 20061208
  Serious: Yes (Hospitalization)
  Sender: FDA-Public Use
  Company Number: None

PATIENT
  Sex: Female
  Weight: 65.5 kg

DRUGS (4)
  1. ZOCOR [Suspect]
     Indication: HYPERCHOLESTEROLAEMIA
     Dosage: 80MG   EVERY NIGHT AT BED   PO
     Route: 048
  2. RANITIDINE [Concomitant]
  3. LABETALOL HCL [Concomitant]
  4. IBUPROFEN [Concomitant]

REACTIONS (6)
  - ABASIA [None]
  - BACK PAIN [None]
  - LIVER FUNCTION TEST ABNORMAL [None]
  - NECK PAIN [None]
  - PAIN IN EXTREMITY [None]
  - RHABDOMYOLYSIS [None]
